FAERS Safety Report 22139268 (Version 1)
Quarter: 2023Q1

REPORT INFORMATION
  Report Type: Spontaneous
  Country: US (occurrence: US)
  Receive Date: 20230327
  Receipt Date: 20230327
  Transmission Date: 20230418
  Serious: Yes (Other)
  Sender: FDA-Public Use
  Company Number: US-ORGANON-O2303USA002052

PATIENT
  Sex: Female
  Weight: 145.58 kg

DRUGS (1)
  1. NEXPLANON [Suspect]
     Active Substance: ETONOGESTREL
     Indication: Contraception
     Dosage: 1 IMPLANT IN LEFT ARM OF 68 MG EVERY 3 YEARS
     Route: 059
     Dates: start: 201810

REACTIONS (8)
  - Device dislocation [Not Recovered/Not Resolved]
  - Weight increased [Unknown]
  - Weight decreased [Unknown]
  - Complication associated with device [Recovered/Resolved]
  - Complication associated with device [Recovered/Resolved]
  - Complication of device removal [Not Recovered/Not Resolved]
  - Device use issue [Unknown]
  - Incorrect product administration duration [Unknown]

NARRATIVE: CASE EVENT DATE: 20180101
